FAERS Safety Report 9197284 (Version 1)
Quarter: 2013Q1

REPORT INFORMATION
  Report Type: Spontaneous
  Country: US (occurrence: None)
  Receive Date: 20120709
  Receipt Date: 20120709
  Transmission Date: 20140127
  Serious: No
  Sender: FDA-Public Use
  Company Number: 2012HGS-003587

PATIENT
  Age: 47 Year
  Sex: Female
  Weight: 117.94 kg

DRUGS (8)
  1. BENLYSTA [Suspect]
     Indication: SYSTEMIC LUPUS ERYTHEMATOSUS
     Dosage: 1 IN 28 D
     Route: 041
     Dates: start: 201203
  2. PLAQUENIL (HYDROCHLORQUINE SULFATE) (HYDROCHLOROQUINE SULFATE) [Concomitant]
  3. IMURAN (AZATHIOPRINE) (AZATHIOPRINE) [Concomitant]
  4. CLONIDINE (CLONIDINE) (CLONIDINE) [Concomitant]
  5. LOSARTAN (LOSARTAN) (LOSARTAN) [Concomitant]
  6. AMLODIPINE (AMLODIPINE) (AMLODIPINE) [Concomitant]
  7. LASIX (FUROSEMIDE) (FUROSEMIDE) [Concomitant]
  8. SYNTHROID (LEVOTHYROXINE SODIUM) (LEVOTHYROXINE SODIUM) [Concomitant]

REACTIONS (1)
  - Catheter site erythema [None]
